FAERS Safety Report 15708068 (Version 1)
Quarter: 2018Q4

REPORT INFORMATION
  Report Type: Spontaneous
  Country: US (occurrence: US)
  Receive Date: 20181211
  Receipt Date: 20181211
  Transmission Date: 20190205
  Serious: Yes (Disabling, Other)
  Sender: FDA-Public Use
  Company Number: None

PATIENT
  Age: 37 Year
  Sex: Female
  Weight: 63 kg

DRUGS (10)
  1. KLONOPIN [Concomitant]
     Active Substance: CLONAZEPAM
  2. VITAMIN D [Concomitant]
     Active Substance: CHOLECALCIFEROL
  3. VITAMIN C [Concomitant]
     Active Substance: ASCORBIC ACID
  4. MICROGESTIN [Concomitant]
     Active Substance: ETHINYL ESTRADIOL\NORETHINDRONE ACETATE
  5. FISH OIL [Concomitant]
     Active Substance: FISH OIL
  6. ZYPREXA [Suspect]
     Active Substance: OLANZAPINE
     Indication: INSOMNIA
     Dosage: ?          QUANTITY:1 TABLET(S);?
     Route: 048
     Dates: start: 20170414, end: 20180704
  7. VITAMIN B [Concomitant]
     Active Substance: VITAMIN B
  8. LTRYPTHOPAN [Concomitant]
  9. L THEANINE [Concomitant]
  10. DICYCLOMINE [Concomitant]
     Active Substance: DICYCLOMINE HYDROCHLORIDE

REACTIONS (12)
  - Dysphagia [None]
  - Weight increased [None]
  - Apathy [None]
  - Temperature regulation disorder [None]
  - Impaired quality of life [None]
  - Withdrawal syndrome [None]
  - Irritable bowel syndrome [None]
  - Cortisol increased [None]
  - Intellectual disability [None]
  - Insomnia [None]
  - Gastrooesophageal reflux disease [None]
  - Anxiety [None]

NARRATIVE: CASE EVENT DATE: 20180704
